FAERS Safety Report 13624671 (Version 2)
Quarter: 2017Q2

REPORT INFORMATION
  Report Type: Spontaneous
  Country: US (occurrence: US)
  Receive Date: 20170608
  Receipt Date: 20170619
  Transmission Date: 20170830
  Serious: No
  Sender: FDA-Public Use
  Company Number: US-PFIZER INC-2017246161

PATIENT
  Age: 62 Year
  Sex: Female

DRUGS (2)
  1. CARBOPLATIN. [Suspect]
     Active Substance: CARBOPLATIN
     Dosage: UNK, CYCLIC (4 CYCLES)
     Dates: start: 201206, end: 201209
  2. CARBOPLATIN. [Suspect]
     Active Substance: CARBOPLATIN
     Indication: CHEMOTHERAPY MULTIPLE AGENTS SYSTEMIC
     Dosage: UNK, CYCLIC (6 CYCLES)
     Dates: start: 201002, end: 201006

REACTIONS (1)
  - Hypersensitivity [Unknown]
